FAERS Safety Report 4925405-1 (Version None)
Quarter: 2006Q1

REPORT INFORMATION
  Report Type: 
  Country: None (occurrence: None)
  Receive Date: 20060228
  Receipt Date: 20050215
  Transmission Date: 20060701
  Serious: No
  Sender: FDA-Public Use
  Company Number: US-GLAXOSMITHKLINE-A0545694A

PATIENT
  Sex: Male

DRUGS (4)
  1. LAMICTAL [Suspect]
     Indication: BIPOLAR DISORDER
     Dosage: 25MG PER DAY
     Route: 048
     Dates: start: 20050204, end: 20050213
  2. WELLBUTRIN XL [Concomitant]
     Dosage: 300MG PER DAY
     Route: 048
  3. LEXAPRO [Concomitant]
     Dosage: 20MG PER DAY
     Route: 065
  4. HIV TREATMENTS (UNSPECIFIED) [Concomitant]
     Route: 065

REACTIONS (3)
  - EYE PRURITUS [None]
  - EYE SWELLING [None]
  - LACRIMATION INCREASED [None]
